FAERS Safety Report 4509817-6 (Version None)
Quarter: 2004Q4

REPORT INFORMATION
  Report Type: 
  Country: None (occurrence: None)
  Receive Date: 20041119
  Receipt Date: 20041029
  Transmission Date: 20050328
  Serious: Yes (Hospitalization)
  Sender: FDA-Public Use
  Company Number: US_0411107758

PATIENT
  Age: 57 Year
  Sex: Female
  Weight: 82 kg

DRUGS (3)
  1. HUMALOG [Suspect]
     Dates: start: 20010101
  2. GLUCOPHAGE [Concomitant]
  3. LANTUS [Concomitant]

REACTIONS (4)
  - ADHESION [None]
  - PANCREATITIS [None]
  - PHARMACEUTICAL PRODUCT COMPLAINT [None]
  - SURGERY [None]
